FAERS Safety Report 23914027 (Version 1)
Quarter: 2024Q2

REPORT INFORMATION
  Report Type: Spontaneous
  Country: PT (occurrence: PT)
  Receive Date: 20240529
  Receipt Date: 20240529
  Transmission Date: 20240716
  Serious: Yes (Other)
  Sender: FDA-Public Use
  Company Number: PT-MLMSERVICE-20240513-PI058904-00201-1

PATIENT

DRUGS (1)
  1. LIDOCAINE [Suspect]
     Active Substance: LIDOCAINE
     Indication: Analgesic therapy
     Dosage: SEQUENTIAL BLOCK
     Route: 008

REACTIONS (4)
  - Motor dysfunction [Unknown]
  - Nerve block [Unknown]
  - Maternal exposure during pregnancy [Unknown]
  - Hypotension [Unknown]
